FAERS Safety Report 8272623 (Version 4)
Quarter: 2013Q2

REPORT INFORMATION
  Report Type: Report from Study
  Country: JP (occurrence: JP)
  Receive Date: 20111202
  Receipt Date: 20130625
  Transmission Date: 20140414
  Serious: Yes (Hospitalization)
  Sender: FDA-Public Use
  Company Number: JP-EISAI INC-E7389-01759-SPO-JP

PATIENT
  Age: 52 Year
  Sex: Female
  Weight: 50 kg

DRUGS (17)
  1. HALAVEN [Suspect]
     Indication: BREAST CANCER RECURRENT
     Route: 041
     Dates: start: 20111018
  2. HALAVEN [Suspect]
     Indication: METASTASES TO LYMPH NODES
     Route: 041
     Dates: start: 20110913, end: 20110920
  3. HALAVEN [Suspect]
     Indication: METASTASES TO LIVER
  4. HALAVEN [Suspect]
     Indication: METASTASES TO BONE
  5. FENTOS [Concomitant]
     Indication: BREAST CANCER RECURRENT
  6. FENTOS [Concomitant]
     Indication: METASTASES TO LYMPH NODES
  7. FENTOS [Concomitant]
     Indication: METASTASES TO LIVER
  8. FENTOS [Concomitant]
     Indication: METASTASES TO BONE
  9. FENILENE [Concomitant]
     Route: 048
  10. TAKEPRON [Concomitant]
  11. LOXONIN [Concomitant]
     Indication: BREAST CANCER RECURRENT
     Route: 048
  12. LOXONIN [Concomitant]
     Indication: METASTASES TO LYMPH NODES
  13. LOXONIN [Concomitant]
     Indication: METASTASES TO LIVER
  14. LOXONIN [Concomitant]
     Indication: METASTASES TO BONE
  15. MAGMITT [Concomitant]
     Route: 048
  16. MYSLEE [Concomitant]
     Route: 048
  17. ZOMETA [Concomitant]
     Indication: METASTASES TO BONE
     Route: 041

REACTIONS (6)
  - Febrile neutropenia [Recovered/Resolved]
  - Anaemia [Unknown]
  - Malaise [Recovered/Resolved]
  - Neutropenia [Recovered/Resolved]
  - Leukopenia [Recovered/Resolved]
  - Lymphopenia [Recovered/Resolved]
